FAERS Safety Report 12948021 (Version 2)
Quarter: 2016Q4

REPORT INFORMATION
  Report Type: Spontaneous
  Country: GR (occurrence: GR)
  Receive Date: 20161116
  Receipt Date: 20161129
  Transmission Date: 20170207
  Serious: Yes (Death, Hospitalization)
  Sender: FDA-Public Use
  Company Number: GR-SA-2016SA206554

PATIENT
  Age: 54 Year
  Sex: Male

DRUGS (1)
  1. LEMTRADA [Suspect]
     Active Substance: ALEMTUZUMAB
     Indication: MULTIPLE SCLEROSIS
     Route: 042
     Dates: start: 20160924

REACTIONS (4)
  - Status epilepticus [Fatal]
  - Infection [Fatal]
  - Sepsis [Fatal]
  - Haematochezia [Fatal]

NARRATIVE: CASE EVENT DATE: 2016
